FAERS Safety Report 6412068-1 (Version None)
Quarter: 2009Q4

REPORT INFORMATION
  Report Type: 
  Country: None (occurrence: None)
  Receive Date: 20091023
  Receipt Date: 20091013
  Transmission Date: 20100525
  Serious: No
  Sender: FDA-Public Use
  Company Number: CA-PFIZER INC-2009283185

PATIENT
  Age: 64 Year

DRUGS (1)
  1. TENORMIN [Suspect]
     Indication: BLOOD PRESSURE
     Dosage: 50 MG, DAILY
     Route: 048
     Dates: start: 20051201

REACTIONS (2)
  - DRUG INEFFECTIVE [None]
  - LABILE BLOOD PRESSURE [None]
